FAERS Safety Report 5385465-3 (Version None)
Quarter: 2007Q3

REPORT INFORMATION
  Report Type: 
  Country: None (occurrence: None)
  Receive Date: 20070706
  Receipt Date: 20070706
  Transmission Date: 20080115
  Serious: Yes (Life-Threatening, Hospitalization)
  Sender: FDA-Public Use
  Company Number: None

PATIENT
  Sex: Female
  Weight: 60 kg

DRUGS (1)
  1. REMODULIN [Suspect]
     Indication: PULMONARY HYPERTENSION
     Dosage: 96 NG/KG/MIN IV CONT.
     Route: 042
     Dates: start: 20040101

REACTIONS (3)
  - CATHETER SITE DISCHARGE [None]
  - CATHETER SITE PAIN [None]
  - NECK PAIN [None]
